FAERS Safety Report 19842905 (Version 1)
Quarter: 2021Q3

REPORT INFORMATION
  Report Type: Other
  Country: GB (occurrence: GB)
  Receive Date: 20210916
  Receipt Date: 20210916
  Transmission Date: 20211014
  Serious: Yes (Other)
  Sender: FDA-Public Use
  Company Number: GB-ROCHE-2909011

PATIENT
  Sex: Female

DRUGS (1)
  1. RISDIPLAM. [Suspect]
     Active Substance: RISDIPLAM
     Indication: SPINAL MUSCULAR ATROPHY
     Dosage: 0.75MG/ML DOSE: (6.6ML ONCE DAILY)
     Route: 048
     Dates: start: 20210414

REACTIONS (1)
  - Hypoglycaemia [Unknown]
